FAERS Safety Report 5759024-4 (Version None)
Quarter: 2008Q2

REPORT INFORMATION
  Report Type: 
  Country: None (occurrence: None)
  Receive Date: 20080604
  Receipt Date: 20080527
  Transmission Date: 20081010
  Serious: Yes (Hospitalization)
  Sender: FDA-Public Use
  Company Number: KR-SANOFI-SYNTHELABO-F01200800162

PATIENT
  Sex: Female
  Weight: 68.5 kg

DRUGS (10)
  1. ANPLAG [Concomitant]
     Route: 048
  2. DIOVAN [Concomitant]
     Indication: HYPERTENSION
     Route: 048
  3. OLDECA [Concomitant]
     Indication: HYPERTENSION
     Route: 048
  4. SIMVASTATIN [Concomitant]
     Route: 048
  5. GINEXIN-F [Concomitant]
     Route: 048
  6. DIAMICRON [Concomitant]
     Indication: DIABETES MELLITUS
     Route: 048
  7. GLUCOBAY [Concomitant]
     Indication: DIABETES MELLITUS
     Route: 048
  8. LEUCOVORIN CALCIUM [Suspect]
     Route: 041
     Dates: start: 20080110, end: 20080111
  9. FLUOROURACIL [Suspect]
     Route: 041
     Dates: start: 20080110, end: 20080111
  10. OXALIPLATIN [Suspect]
     Indication: COLON CANCER
     Route: 041
     Dates: start: 20080110, end: 20080110

REACTIONS (1)
  - HYPOGLYCAEMIA [None]
